FAERS Safety Report 10068195 (Version 1)
Quarter: 2014Q2

REPORT INFORMATION
  Report Type: Spontaneous
  Country: US (occurrence: US)
  Receive Date: 20140409
  Receipt Date: 20140409
  Transmission Date: 20141212
  Serious: Yes (Hospitalization, Other)
  Sender: FDA-Public Use
  Company Number: US-BAXTER-2014BAX017122

PATIENT
  Sex: Male

DRUGS (5)
  1. DIANEAL LOW CALCIUM [Suspect]
     Indication: PERITONEAL DIALYSIS
     Route: 033
  2. DIANEAL LOW CALCIUM [Suspect]
     Indication: PERITONEAL DIALYSIS
     Route: 033
  3. OXYGEN [Concomitant]
     Indication: CARDIAC FAILURE CONGESTIVE
  4. OXYGEN [Concomitant]
     Indication: OBESITY
  5. OXYGEN [Concomitant]
     Indication: SLEEP APNOEA SYNDROME

REACTIONS (5)
  - Nasopharyngitis [Recovering/Resolving]
  - Chronic respiratory failure [Recovering/Resolving]
  - Viral infection [Recovering/Resolving]
  - Peritonitis [Recovering/Resolving]
  - Peritoneal dialysis complication [Unknown]
